FAERS Safety Report 5000962-8 (Version None)
Quarter: 2006Q2

REPORT INFORMATION
  Report Type: 
  Country: None (occurrence: None)
  Receive Date: 20060512
  Receipt Date: 20040818
  Transmission Date: 20061013
  Serious: Yes (Hospitalization)
  Sender: FDA-Public Use
  Company Number: US-ROCHE-378183

PATIENT
  Age: 60 Year
  Sex: Male
  Weight: 80.7 kg

DRUGS (10)
  1. FUZEON [Suspect]
     Indication: HIV INFECTION
     Dosage: EXPIRATION DATE (U1075): MARCH 2007.
     Route: 065
     Dates: start: 20040504
  2. GABAPENTIN [Suspect]
     Indication: SCIATICA
     Dosage: PILL.
     Route: 065
  3. TRICOR [Concomitant]
     Route: 048
     Dates: start: 20040818
  4. GLYBURIDE [Concomitant]
     Dates: start: 20040818
  5. ZIAGEN [Concomitant]
     Indication: HIV INFECTION
  6. REYATAZ [Concomitant]
     Indication: HIV INFECTION
  7. GLUCOPHAGE [Concomitant]
     Route: 048
  8. CELEBREX [Concomitant]
  9. PRAVACHOL [Concomitant]
     Route: 048
  10. KALETRA [Concomitant]

REACTIONS (24)
  - BLOOD CHOLESTEROL INCREASED [None]
  - BLOOD GLUCOSE ABNORMAL [None]
  - BLOOD PRESSURE INCREASED [None]
  - BLOOD TRIGLYCERIDES INCREASED [None]
  - CLUMSINESS [None]
  - CONSTIPATION [None]
  - DEHYDRATION [None]
  - DEPRESSION [None]
  - DRY MOUTH [None]
  - DRY SKIN [None]
  - FATIGUE [None]
  - FIBROMYALGIA [None]
  - FREQUENT BOWEL MOVEMENTS [None]
  - HYPOAESTHESIA [None]
  - INJECTION SITE REACTION [None]
  - INSOMNIA [None]
  - MOBILITY DECREASED [None]
  - NERVOUSNESS [None]
  - PAIN IN EXTREMITY [None]
  - SCIATICA [None]
  - SPINAL CORD HERNIATION [None]
  - T-LYMPHOCYTE COUNT DECREASED [None]
  - VISION BLURRED [None]
  - WEIGHT DECREASED [None]
